FAERS Safety Report 6657926-8 (Version None)
Quarter: 2010Q1

REPORT INFORMATION
  Report Type: 
  Country: None (occurrence: None)
  Receive Date: 20100330
  Receipt Date: 20100317
  Transmission Date: 20100710
  Serious: Yes (Death)
  Sender: FDA-Public Use
  Company Number: DE-ROCHE-693403

PATIENT
  Age: 81 Year
  Weight: 60 kg

DRUGS (3)
  1. CAPECITABINE [Suspect]
     Indication: DRUG USE FOR UNKNOWN INDICATION
     Route: 065
     Dates: start: 20090423, end: 20090624
  2. ASPIRIN [Concomitant]
  3. OMEPRAZOLE [Concomitant]

REACTIONS (1)
  - DEATH [None]
